FAERS Safety Report 6405290-1 (Version None)
Quarter: 2009Q4

REPORT INFORMATION
  Report Type: 
  Country: None (occurrence: None)
  Receive Date: 20091014
  Receipt Date: 20090930
  Transmission Date: 20100525
  Serious: Yes (Death, Hospitalization)
  Sender: FDA-Public Use
  Company Number: 2009AC000051

PATIENT
  Age: 82 Year
  Sex: Male

DRUGS (20)
  1. DIGOXIN [Suspect]
     Dosage: .25 MG; UNKNOWN; PO
     Route: 048
  2. PROSCAR [Concomitant]
  3. PROTONIX [Concomitant]
  4. PREDNISONE [Concomitant]
  5. LIPITOR [Concomitant]
  6. AUGMENTIN [Concomitant]
  7. FLOMAX [Concomitant]
  8. COZAAR [Concomitant]
  9. GLUCOPHAGE [Concomitant]
  10. METFORMIN HCL [Concomitant]
  11. FOLIC ACID [Concomitant]
  12. LASIX [Concomitant]
  13. ALPRAZOLAM [Concomitant]
  14. RISPERDAL [Concomitant]
  15. AVANDIA [Concomitant]
  16. AMBIEN [Concomitant]
  17. ATENOLOL [Concomitant]
  18. ASPIRIN [Concomitant]
  19. SYNTHROID [Concomitant]
  20. NOVOLOG [Concomitant]

REACTIONS (12)
  - ASTHENIA [None]
  - BRADYCARDIA [None]
  - DIABETES MELLITUS [None]
  - ECONOMIC PROBLEM [None]
  - FATIGUE [None]
  - HYPERTENSION [None]
  - HYPOTHYROIDISM [None]
  - MULTIPLE INJURIES [None]
  - NEUROPATHY PERIPHERAL [None]
  - PNEUMONIA ASPIRATION [None]
  - RENAL FAILURE [None]
  - RHEUMATOID ARTHRITIS [None]
